FAERS Safety Report 19221559 (Version 1)
Quarter: 2021Q2

REPORT INFORMATION
  Report Type: Spontaneous
  Country: HU (occurrence: HU)
  Receive Date: 20210505
  Receipt Date: 20210505
  Transmission Date: 20210717
  Serious: Yes (Death, Other)
  Sender: FDA-Public Use
  Company Number: NVSC2021HU098705

PATIENT
  Age: 77 Year
  Sex: Male

DRUGS (1)
  1. NILOTINIB [Suspect]
     Active Substance: NILOTINIB
     Indication: CHRONIC MYELOID LEUKAEMIA
     Dosage: 400 MG, BID
     Route: 065
     Dates: start: 201303

REACTIONS (15)
  - Haematuria [Unknown]
  - Alcohol abuse [Unknown]
  - Death [Fatal]
  - Extranodal marginal zone B-cell lymphoma (MALT type) [Unknown]
  - Colon cancer [Unknown]
  - Gastrointestinal disorder [Unknown]
  - Chronic gastritis [Unknown]
  - Pancreatitis chronic [Unknown]
  - Metastases to lung [Unknown]
  - Cytogenetic analysis abnormal [Unknown]
  - Microcytic anaemia [Unknown]
  - Weight decreased [Unknown]
  - Second primary malignancy [Unknown]
  - Iron deficiency [Unknown]
  - Mucosal disorder [Unknown]

NARRATIVE: CASE EVENT DATE: 201305
